FAERS Safety Report 21319728 (Version 2)
Quarter: 2024Q3

REPORT INFORMATION
  Report Type: Spontaneous
  Country: US (occurrence: US)
  Receive Date: 20220911
  Receipt Date: 20240807
  Transmission Date: 20241017
  Serious: No
  Sender: SANOFI AVENTIS
  Company Number: US-SA-SAC20220901001327

PATIENT
  Sex: Female
  Weight: 64 kg

DRUGS (3)
  1. DUPIXENT [Suspect]
     Active Substance: DUPILUMAB
     Indication: Dermatitis atopic
     Dosage: 300 MG, QOW
     Route: 058
  2. EYSUVIS [Concomitant]
     Active Substance: LOTEPREDNOL ETABONATE
  3. RESTASIS [Concomitant]
     Active Substance: CYCLOSPORINE

REACTIONS (3)
  - Hypersensitivity [Unknown]
  - Malaise [Unknown]
  - Hypersensitivity [Unknown]
